FAERS Safety Report 5079830-1 (Version None)
Quarter: 2006Q3

REPORT INFORMATION
  Report Type: 
  Country: None (occurrence: None)
  Receive Date: 20060720
  Receipt Date: 20050713
  Transmission Date: 20061208
  Serious: Yes (Other)
  Sender: FDA-Public Use
  Company Number: 2005080351

PATIENT
  Sex: Female

DRUGS (1)
  1. CELEBREX [Suspect]
     Indication: ILL-DEFINED DISORDER
     Dates: start: 20010101

REACTIONS (4)
  - CONTUSION [None]
  - MYOCARDIAL INFARCTION [None]
  - SKIN ATROPHY [None]
  - SKIN LACERATION [None]
